FAERS Safety Report 4503723-9 (Version None)
Quarter: 2004Q4

REPORT INFORMATION
  Report Type: 
  Country: None (occurrence: None)
  Receive Date: 20041115
  Receipt Date: 20041101
  Transmission Date: 20050328
  Serious: Yes (Death)
  Sender: FDA-Public Use
  Company Number: 2004-BP-06401BP

PATIENT
  Sex: Female

DRUGS (7)
  1. MOBIC [Suspect]
     Dosage: 30 MG 1 DAILY, PO
     Route: 048
     Dates: end: 20040105
  2. ACETYLSALICYLIC ACID [Suspect]
     Dosage: 75 MG 1 DAILY, PO
     Route: 048
     Dates: end: 20040105
  3. FLUOXETINE [Suspect]
     Dosage: 20 MG, 1 DAILY, PO
     Route: 048
  4. PREDNISOLONE [Suspect]
     Dosage: 2.5, PO
     Route: 048
  5. BUMETANIDE [Suspect]
     Dosage: 1 DOSAGE FORM 1/1 DAY, PO
     Route: 048
  6. ENALAPRIL (ENALAPRIL) [Suspect]
     Dosage: 20 MILLIGRAM, 1/1
  7. BELLADONA EXTRACT [Suspect]
     Dosage: 40 ML, 1 DAILY, PO
     Route: 048

REACTIONS (1)
  - MELAENA [None]
